FAERS Safety Report 11358742 (Version 1)
Quarter: 2015Q3

REPORT INFORMATION
  Report Type: Spontaneous
  Country: US (occurrence: None)
  Receive Date: 20150716
  Receipt Date: 20150716
  Transmission Date: 20151125
  Serious: Yes (Death, Hospitalization)
  Sender: FDA-Public Use
  Company Number: 2015PROUSA04395

PATIENT
  Age: 69 Year
  Sex: Male
  Weight: 73.7 kg

DRUGS (15)
  1. ANUCORT-HC (HYDROCORTISONE ACETATE) SUPPOSITORY UI [Concomitant]
  2. MICRO-K (POTASSIUM CHLORIDE) [Concomitant]
  3. VITAMIN D (COLECALCIFEROL) [Concomitant]
  4. PROVENGE [Suspect]
     Active Substance: SIPULEUCEL-T
     Indication: PROSTATE CANCER METASTATIC
     Route: 042
     Dates: start: 20150312, end: 20150312
  5. DIPHENHYDRAMINE HCL (DIPHENHYDRAMINE HYDROCHLORIDE) [Concomitant]
  6. CASODEX [Concomitant]
     Active Substance: BICALUTAMIDE
  7. DITROPAN (OXYBUTYNIN HYDROCHLORIDE) [Concomitant]
  8. ACETAMINOPHEN. [Concomitant]
     Active Substance: ACETAMINOPHEN
  9. TRIPTORELIN (TRIPTORELIN) [Concomitant]
  10. B-12 (CYANOCOBALAMIN) [Concomitant]
  11. IBUPROFEN (IBUPROFEN) [Concomitant]
     Active Substance: IBUPROFEN
  12. NORCO (HYDROCODONE BITARTRATE, PARACETAMOL) [Concomitant]
  13. SANDOSTATIN [Concomitant]
     Active Substance: OCTREOTIDE ACETATE
  14. MAGNESIUM (MAGNESIUM) [Concomitant]
     Active Substance: MAGNESIUM
  15. FOSAMAX [Concomitant]
     Active Substance: ALENDRONATE SODIUM

REACTIONS (1)
  - Neuroendocrine carcinoma metastatic [None]

NARRATIVE: CASE EVENT DATE: 20150319
